FAERS Safety Report 12257264 (Version 1)
Quarter: 2016Q2

REPORT INFORMATION
  Report Type: Spontaneous
  Country: US (occurrence: US)
  Receive Date: 20160412
  Receipt Date: 20160412
  Transmission Date: 20160815
  Serious: No
  Sender: FDA-Public Use
  Company Number: US-ACTAVIS-2015-21323

PATIENT
  Age: 10 Year
  Sex: Female

DRUGS (1)
  1. MORPHINE ER (AELLC) [Suspect]
     Active Substance: MORPHINE
     Indication: PRODUCT USED FOR UNKNOWN INDICATION
     Dosage: 1/2 OF A 15 MG
     Route: 048
     Dates: start: 20140912

REACTIONS (2)
  - Somnolence [Unknown]
  - Accidental exposure to product by child [Unknown]

NARRATIVE: CASE EVENT DATE: 20140912
